FAERS Safety Report 9056633 (Version 1)
Quarter: 2013Q1

REPORT INFORMATION
  Report Type: Spontaneous
  Country: JP (occurrence: JP)
  Receive Date: 20130204
  Receipt Date: 20130204
  Transmission Date: 20140127
  Serious: Yes (Other)
  Sender: FDA-Public Use
  Company Number: JP-PFIZER INC-2013038944

PATIENT
  Sex: 0

DRUGS (4)
  1. ENBREL [Suspect]
     Indication: RHEUMATOID ARTHRITIS
     Dosage: 50 MG, WEEKLY
  2. AZULFIDINE EN [Suspect]
     Route: 048
  3. METHOTREXATE SODIUM [Suspect]
     Dosage: 6 MG, WEEKLY
     Route: 048
  4. FOLIAMIN [Concomitant]

REACTIONS (1)
  - Inguinal hernia [Unknown]
